FAERS Safety Report 5691952-0 (Version None)
Quarter: 2008Q1

REPORT INFORMATION
  Report Type: 
  Country: None (occurrence: None)
  Receive Date: 20080331
  Receipt Date: 20080319
  Transmission Date: 20080703
  Serious: Yes (Disabling)
  Sender: FDA-Public Use
  Company Number: 2008JP001392

PATIENT
  Age: 73 Year
  Sex: Male
  Weight: 41 kg

DRUGS (10)
  1. VESICARE [Suspect]
     Indication: HYPERTONIC BLADDER
     Dosage: 2.5 MG, UID/QD, ORAL; 2.5 MB, BID, ORAL
     Route: 048
     Dates: start: 20071203, end: 20071226
  2. VESICARE [Suspect]
     Indication: HYPERTONIC BLADDER
     Dosage: 2.5 MG, UID/QD, ORAL; 2.5 MB, BID, ORAL
     Route: 048
     Dates: start: 20071227, end: 20080317
  3. BISOPROLOL FUMARATE [Concomitant]
  4. DOXAZOSIN MESYLATE [Concomitant]
  5. ADALAT [Concomitant]
  6. GASTER D [Concomitant]
  7. ACECOL (TEMOCAPRIL HYDROCHLORIDE) [Concomitant]
  8. MICARDIS [Concomitant]
  9. URSO 250 [Concomitant]
  10. PROMAC (POLAPREZINC) [Concomitant]

REACTIONS (1)
  - RENAL FAILURE CHRONIC [None]
